FAERS Safety Report 6106741-2 (Version None)
Quarter: 2009Q1

REPORT INFORMATION
  Report Type: 
  Country: None (occurrence: None)
  Receive Date: 20090304
  Receipt Date: 20090217
  Transmission Date: 20090719
  Serious: Yes (Death, Hospitalization)
  Sender: FDA-Public Use
  Company Number: WAES 0710AUS00204

PATIENT
  Age: 45 Year
  Sex: Male

DRUGS (15)
  1. RALTEGRAVIR [Suspect]
     Indication: HIV INFECTION
     Dosage: 400 MG/BID PO
     Route: 048
     Dates: start: 20070829, end: 20071012
  2. TMC-125 (ETRAVIRINE) [Suspect]
     Indication: HIV INFECTION
     Dosage: 200 MG/BID PO
     Route: 048
     Dates: start: 20070829, end: 20071012
  3. DEXAMETHASONE [Suspect]
     Indication: CASTLEMAN'S DISEASE
     Dosage: 2 MG/DAILY PO
     Route: 048
  4. BACTRIM DS [Concomitant]
  5. CALTRATE [Concomitant]
  6. OSTELIN (ERGOCALCIFEROL) [Concomitant]
  7. TMC114 [Concomitant]
  8. ALPRAZOLAM [Concomitant]
  9. AMPHOTERICIN B [Concomitant]
  10. AZITHROMYCIN [Concomitant]
  11. DOXORUBICIN HCL [Concomitant]
  12. LAMIVUDINE [Concomitant]
  13. RITONAVIR [Concomitant]
  14. TENOFOVIR [Concomitant]
  15. ZOLPIDEM TARTRATE [Concomitant]

REACTIONS (21)
  - ABDOMINAL DISTENSION [None]
  - AIDS RELATED COMPLEX [None]
  - ANAL ABSCESS [None]
  - CHOLESTATIC LIVER INJURY [None]
  - DISEASE PROGRESSION [None]
  - DRUG TOXICITY [None]
  - GENERAL PHYSICAL HEALTH DETERIORATION [None]
  - HEPATIC NECROSIS [None]
  - HEPATITIS C [None]
  - HEPATITIS CHOLESTATIC [None]
  - HEPATOTOXICITY [None]
  - HIV INFECTION [None]
  - HYPERGLYCAEMIA [None]
  - IMMUNE RECONSTITUTION SYNDROME [None]
  - INCORRECT DOSE ADMINISTERED [None]
  - OSTEOPOROTIC FRACTURE [None]
  - PAIN [None]
  - SPINAL FRACTURE [None]
  - STAPHYLOCOCCAL ABSCESS [None]
  - STAPHYLOCOCCAL SKIN INFECTION [None]
  - SUBCUTANEOUS ABSCESS [None]
